FAERS Safety Report 7734046-2 (Version None)
Quarter: 2011Q3

REPORT INFORMATION
  Report Type: 
  Country: None (occurrence: None)
  Receive Date: 20110907
  Receipt Date: 20110831
  Transmission Date: 20111222
  Serious: No
  Sender: FDA-Public Use
  Company Number: PH-B.I. PHARMACEUTICALS,INC./RIDGEFIELD-2011-CS-00697RP

PATIENT

DRUGS (1)
  1. PRADAXA [Suspect]
     Indication: CEREBROVASCULAR ACCIDENT PROPHYLAXIS
     Dosage: 300 MG
     Route: 048
     Dates: start: 20110801, end: 20110801

REACTIONS (8)
  - UPPER GASTROINTESTINAL HAEMORRHAGE [None]
  - ECG SIGNS OF MYOCARDIAL ISCHAEMIA [None]
  - GASTRODUODENAL ULCER [None]
  - HYPOAESTHESIA [None]
  - HAEMOGLOBIN DECREASED [None]
  - MELAENA [None]
  - HEMIPARESIS [None]
  - OESOPHAGEAL ULCER [None]
